FAERS Safety Report 10498141 (Version 3)
Quarter: 2014Q4

REPORT INFORMATION
  Report Type: Report from Study
  Country: ES (occurrence: ES)
  Receive Date: 20141006
  Receipt Date: 20141015
  Transmission Date: 20150528
  Serious: Yes (Hospitalization)
  Sender: FDA-Public Use
  Company Number: ES-ROCHE-1468557

PATIENT
  Age: 63 Year
  Sex: Female

DRUGS (26)
  1. EMULIQUEN [Concomitant]
     Indication: CONSTIPATION
     Route: 065
     Dates: start: 2013
  2. EMCONCOR [Concomitant]
     Active Substance: BISOPROLOL FUMARATE
     Route: 065
     Dates: start: 2000
  3. VALIUM [Concomitant]
     Active Substance: DIAZEPAM
     Indication: ANXIETY
     Route: 065
     Dates: start: 20131017
  4. PECFENT [Concomitant]
     Active Substance: FENTANYL CITRATE
     Route: 065
     Dates: start: 20131226, end: 20140319
  5. OMEPRAZOL [Concomitant]
     Active Substance: OMEPRAZOLE
     Indication: PROPHYLAXIS
     Route: 065
     Dates: start: 201401, end: 20140909
  6. BATMEN [Concomitant]
     Route: 065
     Dates: start: 20140214, end: 20140221
  7. MOTILIUM [Concomitant]
     Active Substance: DOMPERIDONE
     Route: 065
     Dates: start: 20140904, end: 20140909
  8. TRASTUZUMAB [Suspect]
     Active Substance: TRASTUZUMAB
     Indication: HER-2 POSITIVE BREAST CANCER
     Dosage: LOADING DOSE
     Route: 042
     Dates: start: 20131112
  9. LACTULOSE. [Concomitant]
     Active Substance: LACTULOSE
     Indication: CONSTIPATION
     Route: 065
     Dates: start: 2013
  10. ZOLEDRONIC ACID [Concomitant]
     Active Substance: ZOLEDRONIC ACID
     Indication: METASTASES TO BONE
     Route: 065
     Dates: start: 20131112
  11. MUPIROCINA [Concomitant]
     Route: 065
     Dates: start: 20131204
  12. RELIF [Concomitant]
     Route: 065
     Dates: start: 201404
  13. LODERM [Concomitant]
     Route: 065
     Dates: start: 20140214, end: 20140221
  14. PERTUZUMAB [Suspect]
     Active Substance: PERTUZUMAB
     Indication: HER-2 POSITIVE BREAST CANCER
     Dosage: LOADING DOSE
     Route: 042
     Dates: start: 20131112
  15. PACLITAXEL. [Suspect]
     Active Substance: PACLITAXEL
     Indication: HER-2 POSITIVE BREAST CANCER
     Dosage: DATE OF LAST DOSE PRIOR TO SAE- 10/APR/2014
     Route: 065
     Dates: start: 20131012
  16. TOPAMAX [Concomitant]
     Active Substance: TOPIRAMATE
     Indication: PAIN
     Dosage: 50-25 MG DAILY
     Route: 065
     Dates: start: 20130903
  17. GLUCOBAY [Concomitant]
     Active Substance: ACARBOSE
     Route: 065
     Dates: start: 2000
  18. ESCITALOPRAM [Concomitant]
     Active Substance: ESCITALOPRAM OXALATE
     Indication: DEPRESSION
     Route: 065
     Dates: start: 2013
  19. GABAPENTINA [Concomitant]
     Active Substance: GABAPENTIN
     Route: 065
     Dates: start: 20140116, end: 20140909
  20. PERTUZUMAB [Suspect]
     Active Substance: PERTUZUMAB
     Dosage: AS MAINTENANCE DOSE, LAST DOSE GIVEN PRIOR TO THE SAE WAS ON 19/AUG/2014.
     Route: 042
     Dates: start: 20131203
  21. TRASTUZUMAB [Suspect]
     Active Substance: TRASTUZUMAB
     Dosage: AS MAINTENANCE DOSE, LAST DOSE PRIOR TO THE SAE WAS 19/AUG/2014
     Route: 042
     Dates: start: 20131203
  22. OMEPRAZOL [Concomitant]
     Active Substance: OMEPRAZOLE
     Route: 065
     Dates: start: 20140910
  23. METOCLOPRAMIDE. [Concomitant]
     Active Substance: METOCLOPRAMIDE
     Indication: NAUSEA
     Route: 065
     Dates: start: 20140120
  24. CRESTOR [Concomitant]
     Active Substance: ROSUVASTATIN CALCIUM
     Route: 065
     Dates: start: 2000, end: 20140909
  25. JURNISTA [Concomitant]
     Active Substance: HYDROMORPHONE HYDROCHLORIDE
     Indication: PAIN
     Route: 065
     Dates: start: 20131014
  26. ADIRO [Concomitant]
     Active Substance: ASPIRIN
     Route: 065
     Dates: start: 2006

REACTIONS (1)
  - Dehydration [Recovered/Resolved]

NARRATIVE: CASE EVENT DATE: 20140902
